FAERS Safety Report 6455784-8 (Version None)
Quarter: 2009Q4

REPORT INFORMATION
  Report Type: 
  Country: None (occurrence: None)
  Receive Date: 20091125
  Receipt Date: 20090820
  Transmission Date: 20100525
  Serious: No
  Sender: FDA-Public Use
  Company Number: US-ABBOTT-09P-163-0592961-00

PATIENT
  Sex: Female
  Weight: 70.37 kg

DRUGS (4)
  1. SIMCOR [Suspect]
     Indication: BLOOD CHOLESTEROL INCREASED
     Dosage: TOLD NOT TO TAKE DOSE UNTIL SEEN BY PHYSICIAN
     Dates: start: 20090810, end: 20090820
  2. TRAZODONE HCL [Concomitant]
     Indication: DRUG USE FOR UNKNOWN INDICATION
     Route: 048
     Dates: start: 20090701
  3. LEXAPRO [Concomitant]
     Indication: IRRITABLE BOWEL SYNDROME
     Route: 048
  4. AMBIEN [Concomitant]
     Indication: DRUG USE FOR UNKNOWN INDICATION
     Route: 048

REACTIONS (1)
  - DIZZINESS [None]
